FAERS Safety Report 24435990 (Version 1)
Quarter: 2024Q4

REPORT INFORMATION
  Report Type: Spontaneous
  Country: CH (occurrence: CH)
  Receive Date: 20241015
  Receipt Date: 20241015
  Transmission Date: 20250115
  Serious: Yes (Hospitalization, Other)
  Sender: NOVARTIS
  Company Number: None

PATIENT
  Age: 81 Year
  Sex: Male
  Weight: 69.3 kg

DRUGS (11)
  1. ENTRESTO [Interacting]
     Active Substance: SACUBITRIL\VALSARTAN
     Indication: Product used for unknown indication
     Dosage: 3 DOSAGE FORM, QD (24.3 MG SACUBITRIL/ 25.7 MG VALSARTAN PER TABLET; 1-0-2-0)
     Route: 048
  2. NEXIUM [Suspect]
     Active Substance: ESOMEPRAZOLE MAGNESIUM
     Indication: Product used for unknown indication
     Dosage: 20 MG, QD
     Route: 048
     Dates: end: 20240716
  3. NEXIUM [Suspect]
     Active Substance: ESOMEPRAZOLE MAGNESIUM
     Dosage: 20 MG
     Route: 048
     Dates: start: 20240718, end: 20240718
  4. ALDACTONE [Interacting]
     Active Substance: SPIRONOLACTONE
     Indication: Product used for unknown indication
     Dosage: 12.5 MG, QD (25 MG SPIRONOLACTONE PER TABLET)
     Route: 048
     Dates: end: 20240716
  5. ALDACTONE [Interacting]
     Active Substance: SPIRONOLACTONE
     Dosage: 12.5 MG, QD (25 MG SPIRONOLACTONE PER TABLET)
     Route: 048
     Dates: start: 20240719, end: 20240722
  6. TORSEMIDE [Suspect]
     Active Substance: TORSEMIDE
     Indication: Product used for unknown indication
     Dosage: 20 MG, QD (5 MG TORASEMIDE PER TABLET)
     Route: 048
     Dates: end: 20240714
  7. TORSEMIDE [Suspect]
     Active Substance: TORSEMIDE
     Dosage: 20 MG, QD (5 MG TORASEMIDE PER TABLET)
     Route: 048
     Dates: start: 20240718
  8. CANAGLIFLOZIN [Interacting]
     Active Substance: CANAGLIFLOZIN
     Indication: Product used for unknown indication
     Dosage: 100 MG, QD
     Route: 048
  9. ALLOPURINOL [Concomitant]
     Active Substance: ALLOPURINOL
     Indication: Product used for unknown indication
     Dosage: 100 MG, BID
     Route: 048
  10. ELIQUIS [Concomitant]
     Active Substance: APIXABAN
     Indication: Product used for unknown indication
     Dosage: 2.5 MG, Q12H
     Route: 048
  11. METOPROLOL AXAPHARM [Concomitant]
     Indication: Product used for unknown indication
     Dosage: 150 MG, QD (100 MG METOPROLOL PER TABLET; 1-0-0.5-0)
     Route: 048

REACTIONS (2)
  - Hypomagnesaemia [Recovered/Resolved]
  - Hyperkalaemia [Recovering/Resolving]

NARRATIVE: CASE EVENT DATE: 20240714
